FAERS Safety Report 6679448-0 (Version None)
Quarter: 2010Q2

REPORT INFORMATION
  Report Type: 
  Country: None (occurrence: None)
  Receive Date: 20100409
  Receipt Date: 20100325
  Transmission Date: 20101027
  Serious: Yes (Hospitalization)
  Sender: FDA-Public Use
  Company Number: 233111J10USA

PATIENT
  Age: 38 Year
  Sex: Female

DRUGS (4)
  1. REBIF [Suspect]
     Indication: MULTIPLE SCLEROSIS
     Dosage: 44 MCG, 3 IN 1 WK, SUBCUTANEOUS
     Route: 058
     Dates: start: 20091109
  2. DEPAKOTE [Suspect]
     Indication: BIPOLAR DISORDER
     Dates: end: 20100301
  3. CITALOPRAM HYDROBROMIDE [Concomitant]
  4. RISPERDAL [Concomitant]

REACTIONS (6)
  - CONDITION AGGRAVATED [None]
  - CONTUSION [None]
  - DRUG LEVEL INCREASED [None]
  - FALL [None]
  - MULTIPLE SCLEROSIS [None]
  - PLATELET COUNT DECREASED [None]
